FAERS Safety Report 23405515 (Version 1)
Quarter: 2024Q1

REPORT INFORMATION
  Report Type: Spontaneous
  Country: US (occurrence: None)
  Receive Date: 20240113
  Receipt Date: 20240113
  Transmission Date: 20240410
  Serious: No
  Sender: FDA-Public Use
  Company Number: None

PATIENT
  Age: 54 Year
  Sex: Male
  Weight: 105.75 kg

DRUGS (2)
  1. HERBALS\MITRAGYNINE [Suspect]
     Active Substance: HERBALS\MITRAGYNINE
     Indication: Product used for unknown indication
     Dosage: OTHER STRENGTH : TEASPOON FRACTIONS;?OTHER QUANTITY : 1 TEASPOON(S);?FREQUENCY : AS NEEDED;?
     Route: 048
     Dates: start: 20231201, end: 20231208
  2. KAVA [Suspect]
     Active Substance: PIPER METHYSTICUM ROOT
     Indication: Product used for unknown indication
     Dosage: OTHER STRENGTH : TEASPOON FRACTIONS;?OTHER QUANTITY : 1 TEASPOON(S);?FREQUENCY : AS NEEDED;?
     Route: 048
     Dates: start: 20231201, end: 20231208

REACTIONS (10)
  - Feeling abnormal [None]
  - Chest pain [None]
  - Disorientation [None]
  - Taste disorder [None]
  - Dyspnoea [None]
  - Product complaint [None]
  - Poisoning [None]
  - Diarrhoea [None]
  - Product contamination [None]
  - Lung disorder [None]

NARRATIVE: CASE EVENT DATE: 20231201
